FAERS Safety Report 7381559-1 (Version None)
Quarter: 2011Q1

REPORT INFORMATION
  Report Type: 
  Country: None (occurrence: None)
  Receive Date: 20110324
  Receipt Date: 20110324
  Transmission Date: 20110831
  Serious: Yes (Other)
  Sender: FDA-Public Use
  Company Number: None

PATIENT
  Sex: Female
  Weight: 56.6996 kg

DRUGS (1)
  1. EVISTA [Suspect]
     Indication: OSTEOPOROSIS
     Dosage: 50MG 1 PER DAY ORAL BETWEEN 5-10 YEARS
     Route: 048

REACTIONS (2)
  - ECONOMIC PROBLEM [None]
  - TOOTH DISORDER [None]
